FAERS Safety Report 4590134-3 (Version None)
Quarter: 2005Q1

REPORT INFORMATION
  Report Type: 
  Country: None (occurrence: None)
  Receive Date: 20050217
  Receipt Date: 20050208
  Transmission Date: 20050727
  Serious: Yes (Other)
  Sender: FDA-Public Use
  Company Number: HQWYE739403AUG04

PATIENT
  Age: 25 Year
  Sex: Female

DRUGS (1)
  1. NEOVLAR (LEVONORGESTREL/ETHINYL ESTRADIOL, TABLET) [Suspect]
     Indication: ORAL CONTRACEPTION
     Dosage: SEE IMAGE
     Route: 048
     Dates: start: 19980101, end: 20040701

REACTIONS (6)
  - BLOOD PRESSURE INCREASED [None]
  - HEADACHE [None]
  - NAUSEA [None]
  - SELF-MEDICATION [None]
  - TREATMENT NONCOMPLIANCE [None]
  - VISION BLURRED [None]
